FAERS Safety Report 7024486-1 (Version None)
Quarter: 2010Q4

REPORT INFORMATION
  Report Type: 
  Country: None (occurrence: None)
  Receive Date: 20101001
  Receipt Date: 20100929
  Transmission Date: 20110411
  Serious: Yes (Hospitalization)
  Sender: FDA-Public Use
  Company Number: A0836237A

PATIENT
  Age: 69 Year
  Sex: Female
  Weight: 110.9 kg

DRUGS (5)
  1. AVANDIA [Suspect]
     Dosage: 8MG VARIABLE DOSE
     Route: 048
     Dates: start: 20000616, end: 20070401
  2. AVANDARYL [Suspect]
     Route: 048
     Dates: end: 20060801
  3. BENICAR [Concomitant]
  4. ZOCOR [Concomitant]
  5. PRANDIN [Concomitant]

REACTIONS (5)
  - BRAIN INJURY [None]
  - CAROTID ARTERY DISEASE [None]
  - CEREBROVASCULAR ACCIDENT [None]
  - HYPERCHOLESTEROLAEMIA [None]
  - TRANSIENT ISCHAEMIC ATTACK [None]
